FAERS Safety Report 21412286 (Version 1)
Quarter: 2022Q4

REPORT INFORMATION
  Report Type: Spontaneous
  Country: AT (occurrence: AT)
  Receive Date: 20221005
  Receipt Date: 20221005
  Transmission Date: 20230113
  Serious: Yes (Life-Threatening)
  Sender: FDA-Public Use
  Company Number: AT-VER-202200007

PATIENT
  Age: 27 Year

DRUGS (3)
  1. FOSFOMYCIN SODIUM [Suspect]
     Active Substance: FOSFOMYCIN SODIUM
     Indication: Streptococcal sepsis
     Dosage: 40 MG/M
     Route: 042
     Dates: start: 20220825, end: 20220902
  2. DAPTOMYCIN NORAMEDA [Concomitant]
     Indication: Streptococcal sepsis
     Route: 042
     Dates: start: 20220825, end: 20220902
  3. PENICILLIN G [Concomitant]
     Active Substance: PENICILLIN G
     Indication: Streptococcal sepsis
     Route: 042
     Dates: start: 20220822

REACTIONS (2)
  - Cardiac arrest [Recovered/Resolved]
  - Bradycardia [Recovered/Resolved]

NARRATIVE: CASE EVENT DATE: 20220827
